FAERS Safety Report 11889860 (Version 1)
Quarter: 2016Q1

REPORT INFORMATION
  Report Type: Spontaneous
  Country: US (occurrence: US)
  Receive Date: 20160105
  Receipt Date: 20160105
  Transmission Date: 20160526
  Serious: Yes (Life-Threatening, Other)
  Sender: FDA-Public Use
  Company Number: US-MEDTRONIC-1046155

PATIENT
  Age: 54 Year

DRUGS (2)
  1. COMPOUNDED BACLOFEN 1000 MCG/ML [Suspect]
     Active Substance: BACLOFEN
     Indication: PAIN
     Route: 037
  2. DILAUDID [Suspect]
     Active Substance: HYDROMORPHONE HYDROCHLORIDE
     Route: 037

REACTIONS (3)
  - Brain injury [Unknown]
  - Cardiac arrest [Unknown]
  - Depressed level of consciousness [Unknown]

NARRATIVE: CASE EVENT DATE: 20151204
